FAERS Safety Report 5146111-7 (Version None)
Quarter: 2006Q4

REPORT INFORMATION
  Report Type: 
  Country: None (occurrence: None)
  Receive Date: 20061108
  Receipt Date: 20061102
  Transmission Date: 20070319
  Serious: Yes (Life-Threatening, Hospitalization)
  Sender: FDA-Public Use
  Company Number: 2006AP05232

PATIENT
  Age: 79 Year
  Sex: Male

DRUGS (2)
  1. XYLOCAINE W/ EPINEPHRINE [Suspect]
     Indication: EPIDURAL ANAESTHESIA
     Dosage: 2 ML ADMINSITERED
     Route: 008
     Dates: start: 20060113, end: 20060113
  2. ANAPEINE [Suspect]
     Indication: EPIDURAL ANAESTHESIA
     Dosage: 12ML ADMINISTERED
     Route: 008
     Dates: start: 20060113, end: 20060113

REACTIONS (4)
  - BLOOD PRESSURE DECREASED [None]
  - ELECTROMECHANICAL DISSOCIATION [None]
  - HEART RATE DECREASED [None]
  - LOSS OF CONSCIOUSNESS [None]
